FAERS Safety Report 6448204-0 (Version None)
Quarter: 2009Q4

REPORT INFORMATION
  Report Type: 
  Country: None (occurrence: None)
  Receive Date: 20091120
  Receipt Date: 20091112
  Transmission Date: 20100525
  Serious: Yes (Hospitalization)
  Sender: FDA-Public Use
  Company Number: US-NOVOPROD-300716

PATIENT
  Sex: Male
  Weight: 70.748 kg

DRUGS (3)
  1. NOVOLOG MIX 70/30 [Suspect]
     Indication: INSULIN-REQUIRING TYPE 2 DIABETES MELLITUS
     Dosage: 30 U, BID
     Route: 058
     Dates: start: 20060101, end: 20090927
  2. NOVOLOG [Suspect]
     Indication: INSULIN-REQUIRING TYPE 2 DIABETES MELLITUS
     Dosage: 20-25 U, BID
     Dates: start: 20060101
  3. NOVOLOG [Suspect]
     Dosage: 90 U, QD

REACTIONS (5)
  - CHEST PAIN [None]
  - HYPERGLYCAEMIA [None]
  - PANCREATITIS ACUTE [None]
  - RENAL DISORDER [None]
  - WEIGHT INCREASED [None]
